FAERS Safety Report 6903624-2 (Version None)
Quarter: 2010Q3

REPORT INFORMATION
  Report Type: 
  Country: None (occurrence: None)
  Receive Date: 20100803
  Receipt Date: 20081027
  Transmission Date: 20110219
  Serious: Yes (Other)
  Sender: FDA-Public Use
  Company Number: US-PFIZER INC-2008043878

PATIENT
  Sex: Female
  Weight: 63.5 kg

DRUGS (3)
  1. LYRICA [Suspect]
     Indication: NEUROPATHY PERIPHERAL
     Route: 048
     Dates: start: 20060101
  2. LYRICA [Suspect]
     Indication: PAIN
  3. DARVOCET [Concomitant]

REACTIONS (3)
  - FAT TISSUE INCREASED [None]
  - HYPOPHAGIA [None]
  - WEIGHT INCREASED [None]
